FAERS Safety Report 11148905 (Version 1)
Quarter: 2015Q2

REPORT INFORMATION
  Report Type: Spontaneous
  Country: FR (occurrence: None)
  Receive Date: 20150527
  Receipt Date: 20150527
  Transmission Date: 20150821
  Serious: Yes (Life-Threatening, Hospitalization, Other)
  Sender: FDA-Public Use
  Company Number: 2015COV00106

PATIENT
  Age: 56 Year
  Sex: Female

DRUGS (5)
  1. PROCORALAN (IVABRADINE HYDROCHLORIDE) TABLET [Suspect]
     Active Substance: IVABRADINE HYDROCHLORIDE
     Indication: EXTRASYSTOLES
     Route: 048
     Dates: start: 20150416, end: 20150418
  2. ALDACTONE [Concomitant]
     Active Substance: SPIRONOLACTONE
  3. PLAQUENIL [Suspect]
     Active Substance: HYDROXYCHLOROQUINE SULFATE
     Indication: CONNECTIVE TISSUE DISORDER
     Route: 048
     Dates: start: 201108
  4. SEROPLEX (ESCITALOPRAM OXALATE) [Suspect]
     Active Substance: ESCITALOPRAM OXALATE
     Indication: DEPRESSION
     Route: 048
     Dates: end: 20150418
  5. ATACAND [Concomitant]
     Active Substance: CANDESARTAN CILEXETIL

REACTIONS (15)
  - Dyspnoea exertional [None]
  - Malaise [None]
  - Cardio-respiratory arrest [None]
  - Hypokalaemia [None]
  - Chest pain [None]
  - Torsade de pointes [None]
  - Loss of consciousness [None]
  - Metabolic acidosis [None]
  - Hyperlactacidaemia [None]
  - Vertigo [None]
  - Electrocardiogram QT prolonged [None]
  - Nausea [None]
  - Mydriasis [None]
  - Drug ineffective [None]
  - Diarrhoea [None]

NARRATIVE: CASE EVENT DATE: 201504
